FAERS Safety Report 7739420-6 (Version None)
Quarter: 2011Q3

REPORT INFORMATION
  Report Type: 
  Country: None (occurrence: None)
  Receive Date: 20110909
  Receipt Date: 20110830
  Transmission Date: 20111222
  Serious: Yes (Hospitalization, Other)
  Sender: FDA-Public Use
  Company Number: CA-JNJFOC-20110901588

PATIENT
  Sex: Male
  Weight: 116 kg

DRUGS (6)
  1. REMICADE [Suspect]
     Indication: ANKYLOSING SPONDYLITIS
     Route: 042
     Dates: start: 20060109
  2. VALPROIC ACID [Concomitant]
     Indication: CONVULSION
     Route: 065
  3. REMICADE [Suspect]
     Route: 042
     Dates: start: 20110830
  4. KEPPRA [Concomitant]
     Indication: CONVULSION
     Route: 065
  5. METHOTREXATE [Concomitant]
     Route: 048
  6. RAMIPRIL [Concomitant]
     Indication: HYPERTENSION
     Route: 065

REACTIONS (9)
  - PHYSICAL ASSAULT [None]
  - EXCORIATION [None]
  - HYPOTENSION [None]
  - WEIGHT DECREASED [None]
  - TREMOR [None]
  - OEDEMA PERIPHERAL [None]
  - INFUSION RELATED REACTION [None]
  - HEAD INJURY [None]
  - PALLOR [None]
